FAERS Safety Report 7878953-9 (Version None)
Quarter: 2011Q4

REPORT INFORMATION
  Report Type: 
  Country: None (occurrence: None)
  Receive Date: 20111101
  Receipt Date: 20111017
  Transmission Date: 20120403
  Serious: Yes (Other)
  Sender: FDA-Public Use
  Company Number: PHHO2010US00511

PATIENT
  Sex: Female
  Weight: 47 kg

DRUGS (3)
  1. GILENYA [Suspect]
     Indication: MULTIPLE SCLEROSIS
     Dosage: DOSE BLINDED
     Route: 048
     Dates: start: 20090408, end: 20100105
  2. CITALOPRAM HYDROBROMIDE [Concomitant]
     Indication: DEPRESSION
  3. VESICARE [Concomitant]
     Indication: URINARY INCONTINENCE

REACTIONS (2)
  - BREAST MASS [None]
  - BREAST CANCER [None]
